FAERS Safety Report 6074129-9 (Version None)
Quarter: 2009Q1

REPORT INFORMATION
  Report Type: 
  Country: None (occurrence: None)
  Receive Date: 20090211
  Receipt Date: 20090204
  Transmission Date: 20090719
  Serious: Yes (Other)
  Sender: FDA-Public Use
  Company Number: B0558350A

PATIENT
  Age: 3 Year
  Sex: Male

DRUGS (1)
  1. AUGMENTIN '125' [Suspect]
     Indication: UPPER RESPIRATORY TRACT INFECTION
     Dosage: 40MGK PER DAY
     Route: 048
     Dates: start: 20090101, end: 20090101

REACTIONS (5)
  - DIARRHOEA [None]
  - OEDEMA [None]
  - OEDEMA PERIPHERAL [None]
  - RASH [None]
  - SERUM SICKNESS [None]
